FAERS Safety Report 21045513 (Version 1)
Quarter: 2022Q3

REPORT INFORMATION
  Report Type: Spontaneous
  Country: US (occurrence: None)
  Receive Date: 20220706
  Receipt Date: 20220706
  Transmission Date: 20221026
  Serious: Yes (Other)
  Sender: FDA-Public Use
  Company Number: US-ROCHE-3126493

PATIENT
  Age: 53 Year
  Sex: Female

DRUGS (5)
  1. XOLAIR [Suspect]
     Active Substance: OMALIZUMAB
     Indication: Asthma
     Dosage: 150 MG, 2 INJECTIONS (1 IN EACH ARM), MONTHLY, ONGOING: YES
     Route: 058
     Dates: start: 202201
  2. NEBULIZER (UNK INGREDIENTS) [Concomitant]
     Indication: Asthma
  3. VIMPAT [Concomitant]
     Active Substance: LACOSAMIDE
     Indication: Seizure
  4. AIMOVIG [Concomitant]
     Active Substance: ERENUMAB-AOOE
     Indication: Migraine
     Dosage: 140MG/ML
  5. UBRELVY [Concomitant]
     Active Substance: UBROGEPANT
     Indication: Migraine

REACTIONS (9)
  - Seizure [Unknown]
  - Malaise [Not Recovered/Not Resolved]
  - Respiratory disorder [Recovered/Resolved]
  - Feeling abnormal [Recovered/Resolved]
  - Illness [Unknown]
  - Urinary tract infection [Unknown]
  - Pain [Unknown]
  - Injection site pain [Unknown]
  - Stress [Unknown]

NARRATIVE: CASE EVENT DATE: 20220101
